FAERS Safety Report 21739267 (Version 1)
Quarter: 2022Q4

REPORT INFORMATION
  Report Type: Spontaneous
  Country: GB (occurrence: GB)
  Receive Date: 20221216
  Receipt Date: 20221216
  Transmission Date: 20230113
  Serious: Yes (Other)
  Sender: FDA-Public Use
  Company Number: GB-AUROBINDO-AUR-APL-2022-052406

PATIENT
  Age: 65 Year
  Sex: Female

DRUGS (2)
  1. PRAVASTATIN [Suspect]
     Active Substance: PRAVASTATIN
     Indication: Myalgia
     Dosage: 20 MILLIGRAM
     Route: 065
     Dates: start: 20221010, end: 20221016
  2. FUCIDIN [Suspect]
     Active Substance: FUSIDATE SODIUM
     Indication: Product used for unknown indication
     Dosage: 20 MILLIGRAM, 3 TIMES A DAY
     Route: 065
     Dates: start: 20221013, end: 20221020

REACTIONS (3)
  - Myalgia [Unknown]
  - Arthralgia [Unknown]
  - Skin haemorrhage [Recovered/Resolved]

NARRATIVE: CASE EVENT DATE: 20221010
